FAERS Safety Report 23080724 (Version 3)
Quarter: 2023Q4

REPORT INFORMATION
  Report Type: Spontaneous
  Country: FR (occurrence: FR)
  Receive Date: 20231018
  Receipt Date: 20231129
  Transmission Date: 20240110
  Serious: Yes (Other)
  Sender: FDA-Public Use
  Company Number: FR-SAMIL-GLO2023FR006393

PATIENT
  Age: 7 Year
  Sex: Female

DRUGS (15)
  1. ETOPOSIDE [Suspect]
     Active Substance: ETOPOSIDE
     Indication: Retinoblastoma
     Dosage: UNK, 2 CYCLES
     Route: 065
     Dates: start: 2020, end: 2020
  2. CARBOPLATIN [Suspect]
     Active Substance: CARBOPLATIN
     Indication: Retinoblastoma
     Dosage: UNK
     Route: 065
     Dates: start: 2020, end: 2020
  3. CARBOPLATIN [Suspect]
     Active Substance: CARBOPLATIN
     Dosage: 2 CYCLES
     Route: 042
  4. CARBOPLATIN [Suspect]
     Active Substance: CARBOPLATIN
     Dosage: 2 CYCLES
     Route: 042
  5. VINCRISTINE [Suspect]
     Active Substance: VINCRISTINE
     Indication: Metastasis
     Dosage: UNK
     Route: 042
     Dates: start: 2020, end: 2020
  6. VINCRISTINE [Suspect]
     Active Substance: VINCRISTINE
     Indication: Prophylaxis
  7. CYCLOPHOSPHAMIDE [Suspect]
     Active Substance: CYCLOPHOSPHAMIDE
     Indication: Metastasis
     Dosage: 2 INJECTIONS
     Route: 042
     Dates: start: 2020, end: 2020
  8. CYCLOPHOSPHAMIDE [Suspect]
     Active Substance: CYCLOPHOSPHAMIDE
     Indication: Prophylaxis
  9. MELPHALAN [Suspect]
     Active Substance: MELPHALAN
     Indication: Retinoblastoma
     Dosage: 0.06 MILLIGRAM (TOTAL 9 IVITC OF MELPHALAN)
     Dates: start: 2020, end: 2020
  10. MELPHALAN [Suspect]
     Active Substance: MELPHALAN
     Indication: Retinoblastoma
     Dosage: 5 MILLIGRAM, 4 MONTHLY INJECTIONS
     Route: 013
     Dates: start: 2020, end: 2020
  11. VINCRISTINE SULFATE [Suspect]
     Active Substance: VINCRISTINE SULFATE
     Indication: Retinoblastoma
     Dosage: 2 INJECTIONS
     Route: 042
  12. IODINE I-125 [Suspect]
     Active Substance: IODINE I-125
     Indication: Retinoblastoma
     Dosage: 45 GY AT 6
     Route: 065
  13. MELPHALAN [Suspect]
     Active Substance: MELPHALAN
     Indication: Retinoblastoma
     Dosage: 0.06 MILLIGRAM
     Route: 065
  14. MELPHALAN [Suspect]
     Active Substance: MELPHALAN
     Dosage: 0.06 MILLIGRAM
     Route: 065
  15. ETOPOSIDE [Suspect]
     Active Substance: ETOPOSIDE
     Indication: Retinoblastoma
     Dosage: 2 CYCLES
     Route: 042

REACTIONS (5)
  - Iris adhesions [Recovered/Resolved]
  - Cataract [Recovered/Resolved]
  - Iris atrophy [Recovered/Resolved]
  - Drug effective for unapproved indication [Unknown]
  - Off label use [Unknown]
